FAERS Safety Report 9557644 (Version 2)
Quarter: 2013Q4

REPORT INFORMATION
  Report Type: Report from Study
  Country: US (occurrence: US)
  Receive Date: 20130724
  Receipt Date: 20131112
  Transmission Date: 20140711
  Serious: Yes (Death, Other)
  Sender: FDA-Public Use
  Company Number: PHEH2012US018340

PATIENT
  Sex: Female

DRUGS (7)
  1. GLEEVEC [Suspect]
     Indication: SOFT TISSUE CANCER
     Dosage: 600 MG, DAILY
     Route: 048
     Dates: start: 20130813
  2. SUCRALFATE [Concomitant]
     Dosage: UNK UKN, UNK
  3. OMEPRAZOLE [Concomitant]
     Dosage: UNK UKN, UNK
  4. AMLODIPINE [Concomitant]
     Dosage: UNK UKN, UNK
  5. LEVOTHYROXINE [Concomitant]
     Dosage: UNK UKN, UNK
  6. CALCIUM [Concomitant]
     Dosage: UNK UKN, UNK
  7. MULTIVITAMIN [Concomitant]
     Dosage: UNK UKN, UNK

REACTIONS (3)
  - Death [Fatal]
  - Neoplasm progression [Unknown]
  - Malignant neoplasm progression [Unknown]
